FAERS Safety Report 7339206-0 (Version None)
Quarter: 2011Q1

REPORT INFORMATION
  Report Type: 
  Country: None (occurrence: None)
  Receive Date: 20110228
  Receipt Date: 20110216
  Transmission Date: 20110831
  Serious: Yes (Hospitalization)
  Sender: FDA-Public Use
  Company Number: 830469

PATIENT
  Age: 69 Year
  Sex: Male

DRUGS (2)
  1. IMIPENEM AND CILASTATIN [Suspect]
     Indication: PNEUMONIA ASPIRATION
     Dates: start: 20060801
  2. VANCOMYCIN HYDROCHLORIDE [Suspect]
     Indication: PNEUMONIA ASPIRATION
     Dates: start: 20060801

REACTIONS (7)
  - RESPIRATORY DISTRESS [None]
  - UPPER GASTROINTESTINAL HAEMORRHAGE [None]
  - LUMBAR VERTEBRAL FRACTURE [None]
  - CANDIDIASIS [None]
  - OSTEOMYELITIS [None]
  - BLOOD CULTURE POSITIVE [None]
  - EXTRADURAL ABSCESS [None]
